FAERS Safety Report 4675358-9 (Version None)
Quarter: 2005Q2

REPORT INFORMATION
  Report Type: 
  Country: None (occurrence: None)
  Receive Date: 20050527
  Receipt Date: 20050204
  Transmission Date: 20051028
  Serious: No
  Sender: FDA-Public Use
  Company Number: US-BRISTOL-MYERS SQUIBB COMPANY-12849584

PATIENT
  Age: 52 Year
  Sex: Female
  Weight: 91 kg

DRUGS (7)
  1. ABILIFY [Suspect]
     Route: 048
  2. LAMICTAL [Concomitant]
  3. TRAZODONE HCL [Concomitant]
  4. KLONOPIN [Concomitant]
  5. EFFEXOR [Concomitant]
  6. SYNTHROID [Concomitant]
  7. TOPAMAX [Concomitant]

REACTIONS (2)
  - BALANCE DISORDER [None]
  - TREMOR [None]
